FAERS Safety Report 25342148 (Version 2)
Quarter: 2025Q2

REPORT INFORMATION
  Report Type: Report from Study
  Country: CA (occurrence: CA)
  Receive Date: 20250521
  Receipt Date: 20250625
  Transmission Date: 20250717
  Serious: Yes (Other)
  Sender: TAKEDA
  Company Number: CA-TAKEDA-2024TUS060765

PATIENT
  Sex: Male
  Weight: 84 kg

DRUGS (7)
  1. VEDOLIZUMAB [Suspect]
     Active Substance: VEDOLIZUMAB
     Indication: Crohn^s disease
  2. VEDOLIZUMAB [Suspect]
     Active Substance: VEDOLIZUMAB
     Indication: Crohn^s disease
     Dosage: 108 MILLIGRAM, Q2WEEKS
     Dates: start: 20241127
  3. ENALAPRIL [Concomitant]
     Active Substance: ENALAPRIL
  4. FUROSEMIDE [Concomitant]
     Active Substance: FUROSEMIDE
  5. RABEPRAZOLE [Concomitant]
     Active Substance: RABEPRAZOLE
  6. SOLU-CORTEF [Concomitant]
     Active Substance: HYDROCORTISONE SODIUM SUCCINATE
  7. POLYETHYLENE GLYCOL 3350 [Concomitant]
     Active Substance: POLYETHYLENE GLYCOL 3350

REACTIONS (13)
  - Chronic myelomonocytic leukaemia [Unknown]
  - Skin lesion [Unknown]
  - Weight decreased [Unknown]
  - Coronary artery disease [Unknown]
  - Pain [Unknown]
  - Cholelithiasis [Unknown]
  - Post procedural infection [Unknown]
  - Diarrhoea [Unknown]
  - Faeces soft [Unknown]
  - Malaise [Unknown]
  - Abdominal pain [Unknown]
  - Decreased appetite [Unknown]
  - Arthralgia [Unknown]
